FAERS Safety Report 8286918-0 (Version None)
Quarter: 2012Q2

REPORT INFORMATION
  Report Type: 
  Country: None (occurrence: None)
  Receive Date: 20120416
  Receipt Date: 20120410
  Transmission Date: 20120825
  Serious: Yes (Other)
  Sender: FDA-Public Use
  Company Number: US-ASTELLAS-2012US002345

PATIENT
  Sex: Female
  Weight: 132 kg

DRUGS (1)
  1. PROGRAF [Suspect]
     Indication: STEM CELL TRANSPLANT
     Dosage: 1.5 MG, BID
     Route: 048
     Dates: start: 20091020, end: 20120116

REACTIONS (2)
  - OFF LABEL USE [None]
  - GRAFT VERSUS HOST DISEASE [None]
